FAERS Safety Report 4596608-3 (Version None)
Quarter: 2005Q1

REPORT INFORMATION
  Report Type: 
  Country: None (occurrence: None)
  Receive Date: 20050302
  Receipt Date: 20030130
  Transmission Date: 20050727
  Serious: Yes (Hospitalization, Disabling, Other)
  Sender: FDA-Public Use
  Company Number: PHEH2003US01131

PATIENT
  Age: 81 Year
  Sex: Male
  Weight: 68 kg

DRUGS (24)
  1. INTERFERON ALFA [Concomitant]
  2. HYDROCHLORZIDE [Concomitant]
  3. AREDIA [Suspect]
     Indication: MULTIPLE MYELOMA
     Dosage: 90 MG, QMO
     Route: 042
     Dates: start: 19960621, end: 20020513
  4. AMPICILLIN [Concomitant]
     Dosage: UNK, UNK
     Route: 042
  5. PENICILLIN G [Concomitant]
     Dosage: 250 MG, QD
  6. CARDIZEM [Concomitant]
  7. CARDURA [Concomitant]
  8. DIURETICS [Concomitant]
  9. CLINDAMYCIN [Concomitant]
  10. PREDNISONE [Concomitant]
     Dosage: 80MGX7DAYS/40MGX7DAYS/Q35DAYS
     Dates: start: 19960624, end: 19970421
  11. PREDNISONE [Concomitant]
     Dosage: 30 MG BIDX4DAYS/Q28DAYS
     Dates: start: 20010504, end: 20020301
  12. DEXAMETHASONE [Concomitant]
     Indication: BRONCHITIS
     Dosage: 20 MG, Q 35 DAYS
     Dates: start: 19960624, end: 19970421
  13. DEXAMETHASONE [Concomitant]
     Dosage: 40 MG, OVER 4DAYS/Q25DAYS
  14. THALIDOMIDE [Concomitant]
     Indication: MULTIPLE MYELOMA
     Dates: start: 19990101, end: 20010401
  15. FORTAZ [Concomitant]
     Indication: PSEUDOMONAS INFECTION
     Route: 042
     Dates: start: 20001101
  16. VINCRISTINE [Concomitant]
     Dosage: 2MG Q35 DAYS
     Dates: start: 19960624, end: 19970421
  17. VINCRISTINE [Concomitant]
     Dosage: 1.6MG OVER 4 DAYS/Q25DAYS
     Route: 042
     Dates: start: 19981214, end: 19990309
  18. CARMUSTINE [Concomitant]
     Dosage: 40MG Q35DAYS
     Dates: start: 19960624, end: 19970421
  19. CYTOXAN [Concomitant]
     Dosage: 820 MG Q35DAYS
     Dates: start: 19960624, end: 19970421
  20. CYTOXAN [Concomitant]
     Dosage: 1850MG Q3-4WKS
     Dates: start: 19990805, end: 19991104
  21. MELPHALAN [Concomitant]
     Dosage: 22MG QDX4/Q35DAYS
     Dates: start: 19960624, end: 19970421
  22. MELPHALAN [Concomitant]
     Dosage: 16MG X 4DAYS/Q28DAYS
     Dates: start: 20010504, end: 20020301
  23. ZOFRAN [Concomitant]
     Dosage: 20MG /Q35DAYS
     Dates: start: 19960624, end: 19970421
  24. ADRIAMYCIN PFS [Concomitant]
     Dosage: 68MG/OVER 4DAYS/Q25DAYS
     Dates: start: 19981214, end: 19990309

REACTIONS (9)
  - INTERNAL FIXATION OF FRACTURE [None]
  - MANDIBULECTOMY [None]
  - ORAL SURGERY [None]
  - OSTEOMYELITIS [None]
  - OSTEONECROSIS [None]
  - OSTEOSCLEROSIS [None]
  - PATHOLOGICAL FRACTURE [None]
  - PSEUDOMONAS INFECTION [None]
  - TOOTH EXTRACTION [None]
